FAERS Safety Report 15545555 (Version 2)
Quarter: 2018Q4

REPORT INFORMATION
  Report Type: Report from Study
  Country: CA (occurrence: CA)
  Receive Date: 20181024
  Receipt Date: 20181203
  Transmission Date: 20190205
  Serious: Yes (Other)
  Sender: FDA-Public Use
  Company Number: CA-ROCHE-2203392

PATIENT
  Age: 38 Year
  Sex: Male

DRUGS (3)
  1. ADVIL [Concomitant]
     Active Substance: IBUPROFEN
     Indication: HEADACHE
  2. ADVIL COLD + FLU (CANADA) [Concomitant]
     Indication: NASOPHARYNGITIS
  3. OCREVUS [Suspect]
     Active Substance: OCRELIZUMAB
     Indication: PRIMARY PROGRESSIVE MULTIPLE SCLEROSIS
     Dosage: 300 MG AT DAY 0 AND 14, THEN 600 MG EVERY 6 MONTH
     Route: 042
     Dates: start: 20180730

REACTIONS (7)
  - Migraine [Not Recovered/Not Resolved]
  - Muscle spasms [Recovering/Resolving]
  - Toothache [Unknown]
  - Nasopharyngitis [Recovering/Resolving]
  - Gait disturbance [Recovering/Resolving]
  - Sinusitis [Unknown]
  - Headache [Recovering/Resolving]

NARRATIVE: CASE EVENT DATE: 201810
